FAERS Safety Report 6092451-7 (Version None)
Quarter: 2009Q1

REPORT INFORMATION
  Report Type: 
  Country: None (occurrence: None)
  Receive Date: 20090225
  Receipt Date: 20090216
  Transmission Date: 20090719
  Serious: Yes (Disabling, Other)
  Sender: FDA-Public Use
  Company Number: GB-PFIZER INC-2009160739

PATIENT

DRUGS (1)
  1. CARDURA [Suspect]
     Dosage: 16 MG, 1X/DAY
     Route: 048
     Dates: start: 20080830

REACTIONS (3)
  - DISABILITY [None]
  - DRUG PRESCRIBING ERROR [None]
  - FATIGUE [None]
